FAERS Safety Report 8959543 (Version 2)
Quarter: 2013Q1

REPORT INFORMATION
  Report Type: Spontaneous
  Country: US (occurrence: US)
  Receive Date: 20121211
  Receipt Date: 20130116
  Transmission Date: 20140127
  Serious: Yes (Hospitalization, Other)
  Sender: FDA-Public Use
  Company Number: US-CELGENEUS-163-21880-12110539

PATIENT
  Age: 71 None
  Sex: Female

DRUGS (1)
  1. REVLIMID [Suspect]
     Indication: PLASMA CELL MYELOMA
     Dosage: 25 MILLIGRAM
     Route: 048
     Dates: start: 20120308

REACTIONS (23)
  - Varicose vein [Unknown]
  - Bronchitis [Unknown]
  - Cellulitis [Unknown]
  - Anxiety [Unknown]
  - Gastrooesophageal reflux disease [Unknown]
  - Flatulence [Unknown]
  - Migraine [Unknown]
  - Weight decreased [Unknown]
  - Dermatitis contact [Unknown]
  - Decreased appetite [Unknown]
  - Fatigue [Unknown]
  - Nausea [Unknown]
  - Blood potassium decreased [Unknown]
  - Dry skin [Unknown]
  - Increased tendency to bruise [Unknown]
  - Abdominal discomfort [Unknown]
  - Pain in extremity [Unknown]
  - Pain in extremity [Unknown]
  - Sinusitis [Unknown]
  - Pruritus [Unknown]
  - Diarrhoea [Unknown]
  - Dysgeusia [Unknown]
  - Dehydration [Unknown]
